FAERS Safety Report 4982138-3 (Version None)
Quarter: 2006Q2

REPORT INFORMATION
  Report Type: 
  Country: None (occurrence: None)
  Receive Date: 20060419
  Receipt Date: 20060329
  Transmission Date: 20061013
  Serious: Yes (Death)
  Sender: FDA-Public Use
  Company Number: US200604000242

PATIENT
  Age: 94 Year
  Sex: Female

DRUGS (1)
  1. CYMBALTA [Suspect]
     Indication: DEPRESSION
     Dosage: 30 MG; 60 NG
     Dates: start: 20060101

REACTIONS (2)
  - BLOOD SODIUM INCREASED [None]
  - MYOCARDIAL INFARCTION [None]
